FAERS Safety Report 18835180 (Version 1)
Quarter: 2021Q1

REPORT INFORMATION
  Report Type: Spontaneous
  Country: US (occurrence: US)
  Receive Date: 20210203
  Receipt Date: 20210203
  Transmission Date: 20210419
  Serious: No
  Sender: FDA-Public Use
  Company Number: US-ALLERGAN-2015118US

PATIENT
  Age: 63 Year
  Sex: Female

DRUGS (2)
  1. THYROID THERAPY [Concomitant]
     Active Substance: UNSPECIFIED INGREDIENT
  2. BOTOX COSMETIC [Suspect]
     Active Substance: ONABOTULINUMTOXINA
     Indication: SKIN WRINKLING
     Dosage: 25 UNITS, SINGLE
     Dates: start: 201909, end: 201909

REACTIONS (6)
  - Off label use [Unknown]
  - Acne [Unknown]
  - Injection site mass [Unknown]
  - Oral discomfort [Not Recovered/Not Resolved]
  - Lip disorder [Not Recovered/Not Resolved]
  - Headache [Unknown]
